FAERS Safety Report 11813223 (Version 1)
Quarter: 2015Q4

REPORT INFORMATION
  Report Type: Spontaneous
  Country: GB (occurrence: GB)
  Receive Date: 20151209
  Receipt Date: 20151209
  Transmission Date: 20160305
  Serious: Yes (Life-Threatening)
  Sender: FDA-Public Use
  Company Number: GB-TEVA-613255ACC

PATIENT
  Age: 79 Year
  Sex: Male
  Weight: 63 kg

DRUGS (7)
  1. E45 [Concomitant]
     Active Substance: LANOLIN\LIGHT MINERAL OIL\PARAFFIN
     Route: 061
     Dates: start: 20141103
  2. FELODIPINE. [Concomitant]
     Active Substance: FELODIPINE
     Dates: start: 20141103
  3. MOMETASONE [Concomitant]
     Active Substance: MOMETASONE
     Route: 061
     Dates: start: 20141103
  4. BENDROFLUMETHIAZIDE [Concomitant]
     Active Substance: BENDROFLUMETHIAZIDE
     Dosage: EACH MORNING
     Dates: start: 20151109
  5. RAMIPRIL. [Concomitant]
     Active Substance: RAMIPRIL
     Dates: start: 20150803, end: 20151109
  6. LISINOPRIL. [Suspect]
     Active Substance: LISINOPRIL
     Dates: start: 20151109
  7. CO-DYDRAMOL [Concomitant]
     Active Substance: ACETAMINOPHEN\DIHYDROCODEINE
     Dosage: TAKE 1 OR 2 4 TIMES/DAY
     Dates: start: 20100621

REACTIONS (1)
  - Anaphylactic reaction [Recovered/Resolved]

NARRATIVE: CASE EVENT DATE: 20151117
